FAERS Safety Report 17924417 (Version 2)
Quarter: 2021Q1

REPORT INFORMATION
  Report Type: Other
  Country: US (occurrence: US)
  Receive Date: 20200622
  Receipt Date: 20210320
  Transmission Date: 20210419
  Serious: No
  Sender: FDA-Public Use
  Company Number: US-ACORDA-ACO_165212_2020

PATIENT
  Sex: Female
  Weight: 65.31 kg

DRUGS (19)
  1. INBRIJA [Suspect]
     Active Substance: LEVODOPA
     Indication: ON AND OFF PHENOMENON
  2. TYLENOL [Concomitant]
     Active Substance: ACETAMINOPHEN
     Indication: PRODUCT USED FOR UNKNOWN INDICATION
     Dosage: 325 MILLIGRAM (2 TABLET)
     Route: 048
     Dates: start: 20191015
  3. CARBIDOPA AND LEVODOPA [Concomitant]
     Active Substance: CARBIDOPA\LEVODOPA
     Indication: PRODUCT USED FOR UNKNOWN INDICATION
     Dosage: 25?100 MG (1.5 TABLET) 4X/DAY
     Route: 048
     Dates: start: 20191022
  4. LISINOPRIL. [Concomitant]
     Active Substance: LISINOPRIL
     Indication: PRODUCT USED FOR UNKNOWN INDICATION
     Dosage: 2.5 MILLIGRAM
     Route: 048
     Dates: start: 20200227
  5. POTASSIUM [Concomitant]
     Active Substance: POTASSIUM
     Indication: PRODUCT USED FOR UNKNOWN INDICATION
     Dosage: 20 MILLIGRAM (10 MEQ)
     Route: 048
     Dates: start: 20191106
  6. GUAIFENESIN. [Concomitant]
     Active Substance: GUAIFENESIN
     Indication: PRODUCT USED FOR UNKNOWN INDICATION
     Dosage: 100 MG/5 ML (10 ML)
     Route: 048
     Dates: start: 20191015
  7. AMANTADINE HCL [Concomitant]
     Active Substance: AMANTADINE HYDROCHLORIDE
     Indication: PRODUCT USED FOR UNKNOWN INDICATION
     Dosage: 100 MILLIGRAM
     Route: 048
     Dates: start: 20191016
  8. FUROSEMIDE. [Concomitant]
     Active Substance: FUROSEMIDE
     Indication: PRODUCT USED FOR UNKNOWN INDICATION
     Dosage: 20 MILLIGRAM
     Route: 048
     Dates: start: 20191106
  9. MIRTAZAPINE. [Concomitant]
     Active Substance: MIRTAZAPINE
     Indication: PRODUCT USED FOR UNKNOWN INDICATION
     Dosage: 15 MILLIGRAM
     Route: 048
     Dates: start: 20191016
  10. ZOFRAN [Concomitant]
     Active Substance: ONDANSETRON HYDROCHLORIDE
     Indication: PRODUCT USED FOR UNKNOWN INDICATION
     Dosage: DISINTEGRATING 4 MG
     Route: 048
     Dates: start: 20191217
  11. PRAMIPEXOLE DIHYDROCHLORIDE. [Concomitant]
     Active Substance: PRAMIPEXOLE DIHYDROCHLORIDE
     Indication: PRODUCT USED FOR UNKNOWN INDICATION
     Dosage: 0.5 MILLIGRAM
     Route: 048
     Dates: start: 20191016
  12. LEVOTHYROXINE SODIUM. [Concomitant]
     Active Substance: LEVOTHYROXINE SODIUM
     Indication: PRODUCT USED FOR UNKNOWN INDICATION
     Dosage: 125 MICROGRAM
     Route: 048
     Dates: start: 20191016
  13. GABAPENTIN. [Concomitant]
     Active Substance: GABAPENTIN
     Indication: PRODUCT USED FOR UNKNOWN INDICATION
     Dosage: 100 MILLIGRAM
     Route: 048
     Dates: start: 20191016
  14. CHOLECALCIFEROL [Concomitant]
     Active Substance: CHOLECALCIFEROL
     Indication: PRODUCT USED FOR UNKNOWN INDICATION
     Dosage: 1000 UNITS
     Route: 048
     Dates: start: 20191016
  15. MAGNESIUM OXIDE. [Concomitant]
     Active Substance: MAGNESIUM OXIDE
     Indication: PRODUCT USED FOR UNKNOWN INDICATION
     Dosage: 400 MILLIGRAM
     Route: 048
     Dates: start: 20191016
  16. INBRIJA [Suspect]
     Active Substance: LEVODOPA
     Indication: PARKINSON^S DISEASE
     Dosage: 2 CAPSULES, PRN (NOT TO EXCEED 5 DOSES A DAY)
     Dates: start: 20200513
  17. BIOFREEZE [Concomitant]
     Active Substance: MENTHOL
     Indication: PRODUCT USED FOR UNKNOWN INDICATION
     Dosage: COLORLESS GEL 4 PERCENT (APPLY TO RIGHT HAND TOPICAL)
     Route: 065
     Dates: start: 20191015
  18. LORATADINE. [Concomitant]
     Active Substance: LORATADINE
     Indication: PRODUCT USED FOR UNKNOWN INDICATION
     Dosage: 10 MILLIGRAM
     Route: 048
     Dates: start: 20191016
  19. DULOXETINE HYDROCHLORIDE. [Concomitant]
     Active Substance: DULOXETINE HYDROCHLORIDE
     Indication: PRODUCT USED FOR UNKNOWN INDICATION
     Dosage: 60 MILLIGRAM (DELAYED RELEASE PARTICLES 60 MG)
     Route: 048
     Dates: start: 20191016

REACTIONS (3)
  - Hallucination [Not Recovered/Not Resolved]
  - Device difficult to use [Unknown]
  - Patient isolation [Unknown]
